FAERS Safety Report 9333286 (Version 1)
Quarter: 2013Q2

REPORT INFORMATION
  Report Type: Spontaneous
  Country: US (occurrence: US)
  Receive Date: 20130606
  Receipt Date: 20130606
  Transmission Date: 20140414
  Serious: No
  Sender: FDA-Public Use
  Company Number: US-BAYER-2013-065754

PATIENT
  Age: 70 Year
  Sex: Male
  Weight: 220 kg

DRUGS (2)
  1. EOVIST [Suspect]
     Indication: NUCLEAR MAGNETIC RESONANCE IMAGING
     Dosage: 10 ML, ONCE
     Route: 042
     Dates: start: 20130524, end: 20130524
  2. EOVIST [Suspect]
     Indication: CHRONIC HEPATITIS B

REACTIONS (1)
  - Pruritus [Recovered/Resolved]
